FAERS Safety Report 7588892-9 (Version None)
Quarter: 2011Q3

REPORT INFORMATION
  Report Type: 
  Country: None (occurrence: None)
  Receive Date: 20110705
  Receipt Date: 20110629
  Transmission Date: 20111222
  Serious: No
  Sender: FDA-Public Use
  Company Number: US-JNJFOC-20110700181

PATIENT
  Sex: Female
  Weight: 81.65 kg

DRUGS (8)
  1. PREMARIN [Concomitant]
     Indication: HORMONE REPLACEMENT THERAPY
     Route: 065
  2. ZYPREXA [Concomitant]
     Indication: SLEEP DISORDER THERAPY
     Route: 065
  3. REMERON [Concomitant]
     Indication: DEPRESSION
     Route: 065
  4. ZYPREXA [Concomitant]
     Indication: DEPRESSION
     Route: 065
  5. REMERON [Concomitant]
     Indication: SLEEP DISORDER THERAPY
     Route: 065
  6. DURAGESIC-100 [Suspect]
     Indication: FIBROMYALGIA
     Route: 062
     Dates: start: 20110601
  7. NEURONTIN [Concomitant]
     Indication: FIBROMYALGIA
     Route: 065
  8. DURAGESIC-100 [Suspect]
     Indication: PAIN
     Route: 062
     Dates: start: 20110601

REACTIONS (2)
  - PRODUCT QUALITY ISSUE [None]
  - DRUG DOSE OMISSION [None]
